FAERS Safety Report 18282038 (Version 1)
Quarter: 2020Q3

REPORT INFORMATION
  Report Type: Spontaneous
  Country: US (occurrence: US)
  Receive Date: 20200917
  Receipt Date: 20200917
  Transmission Date: 20201103
  Serious: Yes (Hospitalization)
  Sender: FDA-Public Use
  Company Number: None

PATIENT
  Age: 14 Year
  Sex: Male
  Weight: 148 kg

DRUGS (17)
  1. LIDOCAINE?PRILOCAINE [Concomitant]
     Active Substance: LIDOCAINE\PRILOCAINE
  2. POLYETHYLENE GLYCOL 3350. [Concomitant]
     Active Substance: POLYETHYLENE GLYCOL 3350
  3. MOUTHWASH [Concomitant]
     Active Substance: CETYLPYRIDINIUM CHLORIDE
  4. PENTAMADINE ISETHIONATE [Concomitant]
  5. ONCASPAR [Suspect]
     Active Substance: PEGASPARGASE
     Dates: end: 20200815
  6. METHOTREXATE. [Concomitant]
     Active Substance: METHOTREXATE
     Dates: end: 20200909
  7. CYTARABINE. [Concomitant]
     Active Substance: CYTARABINE
     Dates: end: 20200812
  8. VINCRISTINE SULFATE. [Concomitant]
     Active Substance: VINCRISTINE SULFATE
     Dates: end: 20200902
  9. CHOCOLATE LAXATIVE PIECES [Concomitant]
  10. GABAPENTIN. [Concomitant]
     Active Substance: GABAPENTIN
  11. MERCAPTOPURINE. [Concomitant]
     Active Substance: MERCAPTOPURINE
  12. DAUNORUBICIN [Concomitant]
     Active Substance: DAUNORUBICIN
     Dates: end: 20200902
  13. ONDANSETRON HC1 [Concomitant]
  14. PREDNISONE. [Concomitant]
     Active Substance: PREDNISONE
  15. LISINOPRIL. [Concomitant]
     Active Substance: LISINOPRIL
     Route: 048
  16. PREDNISOLONE. [Concomitant]
     Active Substance: PREDNISOLONE
     Dates: end: 20200908
  17. FAMOTIDINE. [Concomitant]
     Active Substance: FAMOTIDINE

REACTIONS (6)
  - Staphylococcal sepsis [None]
  - Pulmonary embolism [None]
  - Chest pain [None]
  - Hypoxia [None]
  - Tachycardia [None]
  - Pyrexia [None]

NARRATIVE: CASE EVENT DATE: 20200916
